FAERS Safety Report 4962515-7 (Version None)
Quarter: 2006Q1

REPORT INFORMATION
  Report Type: 
  Country: None (occurrence: None)
  Receive Date: 20060201
  Receipt Date: 20051114
  Transmission Date: 20060701
  Serious: No
  Sender: FDA-Public Use
  Company Number: 2005PV004338

PATIENT
  Age: 77 Year
  Sex: Female
  Weight: 80.7403 kg

DRUGS (13)
  1. BYETTA [Suspect]
     Indication: DIABETES MELLITUS NON-INSULIN-DEPENDENT
     Dosage: 5 MCG BID SC
     Route: 058
     Dates: start: 20051001
  2. GLUCOPHAGE [Concomitant]
  3. ALTACE [Concomitant]
  4. MICRONASE [Concomitant]
  5. LANOXIN [Concomitant]
  6. VESICARE [Concomitant]
  7. PROTONIX [Concomitant]
  8. ASPIRIN [Concomitant]
  9. PROTEGRA [Concomitant]
  10. GLUCOSAMINE HYDROCHLORIDE/CHONDROITIN SULFATE [Concomitant]
  11. TRICOR [Concomitant]
  12. COREG [Concomitant]
  13. NITRGLYCERIN TRANSDERMAL SYSTEM [Concomitant]

REACTIONS (6)
  - COLD SWEAT [None]
  - DIARRHOEA [None]
  - ERUCTATION [None]
  - FLATULENCE [None]
  - HEART RATE INCREASED [None]
  - KIDNEY INFECTION [None]
